FAERS Safety Report 21293339 (Version 1)
Quarter: 2022Q3

REPORT INFORMATION
  Report Type: Report from Study
  Country: BE (occurrence: BE)
  Receive Date: 20220905
  Receipt Date: 20220905
  Transmission Date: 20221026
  Serious: Yes (Other)
  Sender: FDA-Public Use
  Company Number: BE-BAXTER-2022BAX005844

PATIENT
  Age: 73 Year
  Sex: Female

DRUGS (2)
  1. DOXORUBICIN [Suspect]
     Active Substance: DOXORUBICIN
     Indication: Plasma cell myeloma
     Dosage: 2 MG/ML, SOLUTION FOR INFUSION, ONGOING
     Route: 065
     Dates: start: 20210113, end: 20210113
  2. VELCADE [Suspect]
     Active Substance: BORTEZOMIB
     Indication: Plasma cell myeloma
     Dosage: UNK, ONGOING
     Route: 065
     Dates: start: 20210113, end: 20210113

REACTIONS (5)
  - Urinary retention [Recovered/Resolved]
  - Bladder disorder [Recovered/Resolved]
  - Presyncope [Recovered/Resolved]
  - Anaemia [Recovered/Resolved]
  - Anaemia [Recovered/Resolved]

NARRATIVE: CASE EVENT DATE: 20210126
